FAERS Safety Report 4421991-9 (Version None)
Quarter: 2004Q3

REPORT INFORMATION
  Report Type: 
  Country: None (occurrence: None)
  Receive Date: 20040805
  Receipt Date: 20040728
  Transmission Date: 20050211
  Serious: Yes (Hospitalization)
  Sender: FDA-Public Use
  Company Number: S04-USA-04445-01

PATIENT
  Sex: Female

DRUGS (4)
  1. CELEXA [Suspect]
     Dosage: 60 MG QD PO
     Route: 048
     Dates: end: 20040701
  2. CELEXA [Suspect]
     Dosage: 40 MG QD PO
     Route: 048
     Dates: start: 20040701
  3. CELEXA [Suspect]
  4. SEROQUEL [Concomitant]

REACTIONS (1)
  - PETIT MAL EPILEPSY [None]
